FAERS Safety Report 6044960-4 (Version None)
Quarter: 2009Q1

REPORT INFORMATION
  Report Type: 
  Country: None (occurrence: None)
  Receive Date: 20090121
  Receipt Date: 20090116
  Transmission Date: 20090719
  Serious: Yes (Hospitalization, Disabling)
  Sender: FDA-Public Use
  Company Number: US-JNJFOC-20081106312

PATIENT
  Sex: Male
  Weight: 65.77 kg

DRUGS (4)
  1. DURAGESIC-100 [Suspect]
     Indication: PAIN
     Route: 062
  2. OXYCODONE HCL [Suspect]
     Indication: HEADACHE
     Route: 048
  3. TEGRETOL [Concomitant]
     Indication: CONVULSION
     Route: 048
  4. ATIVAN [Concomitant]
     Indication: CONVULSION
     Route: 048

REACTIONS (4)
  - ACCIDENTAL OVERDOSE [None]
  - CONVULSION [None]
  - DRUG DOSE OMISSION [None]
  - NUCLEAR MAGNETIC RESONANCE IMAGING BRAIN ABNORMAL [None]
